FAERS Safety Report 5932420-8 (Version None)
Quarter: 2008Q4

REPORT INFORMATION
  Report Type: 
  Country: None (occurrence: None)
  Receive Date: 20081027
  Receipt Date: 20081027
  Transmission Date: 20090506
  Serious: Yes (Other)
  Sender: FDA-Public Use
  Company Number: None

PATIENT
  Sex: Female
  Weight: 70.3075 kg

DRUGS (1)
  1. CYMBALTA [Suspect]
     Indication: DEPRESSION
     Dosage: 1TABLET DAILY PO
     Route: 048

REACTIONS (4)
  - ASTHENOPIA [None]
  - PARAESTHESIA [None]
  - VISION BLURRED [None]
  - VISUAL IMPAIRMENT [None]
